FAERS Safety Report 15405700 (Version 7)
Quarter: 2021Q2

REPORT INFORMATION
  Report Type: Spontaneous
  Country: JP (occurrence: JP)
  Receive Date: 20180920
  Receipt Date: 20210531
  Transmission Date: 20210716
  Serious: Yes (Hospitalization, Other)
  Sender: FDA-Public Use
  Company Number: JP-AMGEN-JPNSP2018129943

PATIENT
  Age: 75 Year
  Sex: Male

DRUGS (16)
  1. G?LASTA [Suspect]
     Active Substance: PEGFILGRASTIM
     Indication: COLONY STIMULATING FACTOR THERAPY
     Dosage: 3.6 MG, Q3WK (1X/3 WEEKS)
     Route: 058
     Dates: start: 20171220, end: 20180601
  2. CEFAZOLIN SODIUM. [Concomitant]
     Active Substance: CEFAZOLIN SODIUM
     Dosage: 1 GRAM, BID
     Route: 041
     Dates: start: 20180509, end: 20180509
  3. VANCOMYCIN HYDROCHLORIDE. [Concomitant]
     Active Substance: VANCOMYCIN HYDROCHLORIDE
     Indication: PYODERMA GANGRENOSUM
     Dosage: 0.5 GRAM
     Route: 041
     Dates: start: 20180509
  4. DOCETAXEL. [Suspect]
     Active Substance: DOCETAXEL
     Indication: LUNG ADENOCARCINOMA
     Dosage: 100 MG, Q3WK (1X/3 WEEKS)
     Route: 041
     Dates: start: 20171213, end: 20180529
  5. MAGNESIUM OXIDE. [Concomitant]
     Active Substance: MAGNESIUM OXIDE
     Indication: CONSTIPATION
     Dosage: 250 MILLIGRAM, TID
     Route: 048
     Dates: start: 20171213
  6. LANSOPRAZOLE. [Concomitant]
     Active Substance: LANSOPRAZOLE
     Indication: PROPHYLAXIS AGAINST GASTROINTESTINAL ULCER
     Dosage: 15 MILLIGRAM, QD
     Route: 048
     Dates: start: 20171213
  7. UNITALC (STERILE TALC) [Concomitant]
     Active Substance: TALC
     Indication: MALIGNANT PLEURAL EFFUSION
     Dosage: 4 GRAM
     Route: 038
     Dates: start: 20180418
  8. GRANISETRON [Concomitant]
     Active Substance: GRANISETRON
     Indication: PROPHYLAXIS OF NAUSEA AND VOMITING
     Dosage: 3 MG, Q3WK (1X/3 WEEKS)
     Route: 041
     Dates: start: 20171213, end: 20180529
  9. DEXART [Concomitant]
     Active Substance: DEXAMETHASONE SODIUM PHOSPHATE
     Indication: PROPHYLAXIS OF NAUSEA AND VOMITING
     Dosage: 3.3 MG, Q3WK (1X/3 WEEKS)
     Route: 041
     Dates: start: 20171213, end: 20180529
  10. TAMSULOSIN HYDROCHLORIDE. [Concomitant]
     Active Substance: TAMSULOSIN HYDROCHLORIDE
     Indication: BENIGN PROSTATIC HYPERPLASIA
     Dosage: 0.2 MILLIGRAM, QD
     Route: 048
     Dates: start: 20171213
  11. FUROSEMIDE. [Concomitant]
     Active Substance: FUROSEMIDE
     Indication: OEDEMA
     Dosage: 40 MILLIGRAM, QD
     Route: 048
     Dates: start: 20171213
  12. MEROPENEM. [Concomitant]
     Active Substance: MEROPENEM
     Indication: PYODERMA GANGRENOSUM
     Dosage: 0.5 GRAM
     Route: 041
     Dates: start: 20180509, end: 20180511
  13. DAIKENCHUTO [Concomitant]
     Active Substance: HERBALS
     Indication: CONSTIPATION
     Dosage: 2.5 GRAM, TID
     Route: 048
     Dates: start: 20171213
  14. PRAVASTATIN NA [Concomitant]
     Active Substance: PRAVASTATIN SODIUM
     Indication: HYPERCHOLESTEROLAEMIA
     Dosage: 10 MG, QD
     Route: 048
     Dates: start: 20171213
  15. DIGOSIN [Concomitant]
     Active Substance: DIGOXIN
     Indication: TACHYCARDIA PAROXYSMAL
     Dosage: 0.125 MG, QD
     Route: 048
     Dates: start: 20171213
  16. CEFAZOLIN SODIUM. [Concomitant]
     Active Substance: CEFAZOLIN SODIUM
     Indication: PYODERMA GANGRENOSUM
     Dosage: 1 GRAM, QD
     Route: 041
     Dates: start: 20180508, end: 20180508

REACTIONS (2)
  - Pyoderma gangrenosum [Recovering/Resolving]
  - Pyoderma gangrenosum [Recovered/Resolved]

NARRATIVE: CASE EVENT DATE: 20180504
